FAERS Safety Report 19093115 (Version 1)
Quarter: 2021Q2

REPORT INFORMATION
  Report Type: Spontaneous
  Country: DE (occurrence: DE)
  Receive Date: 20210405
  Receipt Date: 20210405
  Transmission Date: 20210717
  Serious: Yes (Other)
  Sender: FDA-Public Use
  Company Number: DE-BRISTOL-MYERS SQUIBB COMPANY-BMS-2021-031365

PATIENT
  Age: 33 Year
  Sex: Female

DRUGS (10)
  1. PREDNISOLONE. [Suspect]
     Active Substance: PREDNISOLONE
     Indication: IMMUNE THROMBOCYTOPENIA
     Dosage: 30 MILLIGRAM
     Route: 065
     Dates: start: 201809
  2. APIXABAN [Suspect]
     Active Substance: APIXABAN
     Indication: IMMUNE THROMBOCYTOPENIA
  3. REVOLADE [Suspect]
     Active Substance: ELTROMBOPAG OLAMINE
     Indication: IMMUNE THROMBOCYTOPENIA
     Dosage: 50 MILLIGRAM
     Route: 048
     Dates: start: 201808
  4. REVOLADE [Suspect]
     Active Substance: ELTROMBOPAG OLAMINE
     Dosage: 25 MILLIGRAM
     Route: 048
  5. REVOLADE [Suspect]
     Active Substance: ELTROMBOPAG OLAMINE
     Dosage: 75 MILLIGRAM
     Route: 048
     Dates: start: 201901
  6. PREDNISOLONE. [Suspect]
     Active Substance: PREDNISOLONE
     Indication: EVANS SYNDROME
  7. REVOLADE [Suspect]
     Active Substance: ELTROMBOPAG OLAMINE
     Indication: EVANS SYNDROME
     Dosage: 75 MILLIGRAM
     Route: 048
     Dates: start: 201812
  8. REVOLADE [Suspect]
     Active Substance: ELTROMBOPAG OLAMINE
     Dosage: 50 MILLIGRAM
     Route: 048
     Dates: start: 201912
  9. APIXABAN [Suspect]
     Active Substance: APIXABAN
     Indication: EVANS SYNDROME
     Dosage: UNK
     Route: 065
  10. REVOLADE [Suspect]
     Active Substance: ELTROMBOPAG OLAMINE
     Dosage: 50 MILLIGRAM
     Route: 048
     Dates: start: 201809

REACTIONS (7)
  - Pulmonary embolism [Recovering/Resolving]
  - Transaminases increased [Recovering/Resolving]
  - Intentional product use issue [Unknown]
  - Embolism [Recovering/Resolving]
  - Hepatic haematoma [Recovering/Resolving]
  - Pneumonia [Recovering/Resolving]
  - Pulmonary hypertension [Recovering/Resolving]

NARRATIVE: CASE EVENT DATE: 201809
